FAERS Safety Report 7611255-4 (Version None)
Quarter: 2011Q3

REPORT INFORMATION
  Report Type: 
  Country: None (occurrence: None)
  Receive Date: 20110707
  Receipt Date: 20110621
  Transmission Date: 20111222
  Serious: Yes (Other)
  Sender: FDA-Public Use
  Company Number: 20110476

PATIENT
  Age: 40 Year
  Sex: Female
  Weight: 70.3075 kg

DRUGS (1)
  1. DEXAMETHASONE SODIUM PHOSPHATE [Suspect]
     Indication: BACK PAIN
     Dosage: INJECTION NOS
     Dates: start: 20110201, end: 20110201

REACTIONS (11)
  - CONDITION AGGRAVATED [None]
  - BACK PAIN [None]
  - INJECTION SITE INDURATION [None]
  - INJECTION SITE SCAR [None]
  - INJECTION SITE SWELLING [None]
  - CHEST PAIN [None]
  - INJECTION SITE SCAB [None]
  - FEELING ABNORMAL [None]
  - INJECTION SITE REACTION [None]
  - INJECTION SITE ERYTHEMA [None]
  - PRODUCT QUALITY ISSUE [None]
